FAERS Safety Report 9495171 (Version 1)
Quarter: 2013Q3

REPORT INFORMATION
  Report Type: Spontaneous
  Country: GB (occurrence: GB)
  Receive Date: 20130903
  Receipt Date: 20130903
  Transmission Date: 20140515
  Serious: Yes (Other)
  Sender: FDA-Public Use
  Company Number: GB-JNJFOC-20130817067

PATIENT
  Age: 39 Year
  Sex: Male

DRUGS (11)
  1. XARELTO [Suspect]
     Indication: THROMBOSIS PROPHYLAXIS
     Route: 048
     Dates: start: 20130808, end: 20130817
  2. XARELTO [Suspect]
     Indication: ANTICOAGULANT THERAPY
     Route: 048
     Dates: start: 20130808, end: 20130817
  3. PARACETAMOL [Concomitant]
     Route: 065
  4. TOPIRAMATE [Concomitant]
     Route: 065
  5. ENOXAPARIN [Concomitant]
     Route: 065
  6. LEVETIRACETAM [Concomitant]
     Route: 065
  7. ZOMORPH [Concomitant]
     Route: 065
  8. FLUOXETINE [Concomitant]
     Route: 065
  9. DIAZEPAM [Concomitant]
     Route: 065
  10. AMITRIPTYLINE [Concomitant]
     Route: 065
  11. LANSOPRAZOLE [Concomitant]
     Route: 065

REACTIONS (2)
  - Haemorrhage urinary tract [Recovered/Resolved]
  - Urine output increased [Unknown]
